FAERS Safety Report 6753344-2 (Version None)
Quarter: 2010Q2

REPORT INFORMATION
  Report Type: 
  Country: None (occurrence: None)
  Receive Date: 20100603
  Receipt Date: 20100521
  Transmission Date: 20101027
  Serious: Yes (Hospitalization)
  Sender: FDA-Public Use
  Company Number: ES-ELI_LILLY_AND_COMPANY-ES201005006695

PATIENT
  Sex: Female
  Weight: 90 kg

DRUGS (10)
  1. FORTEO [Suspect]
     Indication: OSTEOPOROSIS
     Dosage: 20 UG, DAILY (1/D)
     Route: 058
     Dates: start: 20091201, end: 20100501
  2. FORTEO [Suspect]
     Dosage: 20 UG, DAILY (1/D)
     Route: 058
     Dates: start: 20100501
  3. FERROGRADUMET [Concomitant]
     Indication: ANAEMIA
     Dosage: 2 D/F, DAILY (1/D)
     Route: 048
     Dates: start: 20100501
  4. ACFOL [Concomitant]
     Indication: ANAEMIA
     Dosage: 5 MG, DAILY (1/D)
     Route: 048
     Dates: start: 20100501
  5. FLUOXETINA [Concomitant]
     Indication: DEPRESSION
     Dosage: 20 MG, 2/D
     Route: 048
  6. FLEBOSTASIN [Concomitant]
     Dosage: 300 MG, 2/D
     Route: 048
  7. OMEPRAZOLE [Concomitant]
     Dosage: 20 MG, DAILY (1/D)
     Route: 048
  8. NOBRITOL [Concomitant]
     Indication: DEPRESSION
     Dosage: 12.5 MG, DAILY (1/D)
     Route: 048
  9. NOLOTIL [Concomitant]
     Indication: PAIN
     Dosage: 500 MG, AS NEEDED
     Route: 048
  10. ZALDIAR [Concomitant]
     Indication: PAIN
     Dosage: 75 MG, AS NEEDED
     Route: 048

REACTIONS (1)
  - DEVICE DISLOCATION [None]
